FAERS Safety Report 5076128-2 (Version None)
Quarter: 2006Q3

REPORT INFORMATION
  Report Type: 
  Country: None (occurrence: None)
  Receive Date: 20060807
  Receipt Date: 20060712
  Transmission Date: 20061208
  Serious: Yes (Death, Other)
  Sender: FDA-Public Use
  Company Number: 2006022794

PATIENT
  Age: 74 Year
  Sex: Male
  Weight: 117.4816 kg

DRUGS (5)
  1. CELEBREX [Suspect]
     Indication: PAIN
     Dosage: 200 MG (200 MG, 1 IN 1 D), ORAL
     Route: 048
     Dates: start: 20030801, end: 20040904
  2. NEXIUM [Concomitant]
  3. ZYRTEC [Concomitant]
  4. NORVASC [Concomitant]
  5. CASODEX [Concomitant]

REACTIONS (6)
  - CARDIO-RESPIRATORY ARREST [None]
  - CYANOSIS [None]
  - FALL [None]
  - LOSS OF CONSCIOUSNESS [None]
  - MYOCARDIAL INFARCTION [None]
  - PUPIL FIXED [None]
